FAERS Safety Report 4467127-X (Version None)
Quarter: 2004Q4

REPORT INFORMATION
  Report Type: 
  Country: None (occurrence: None)
  Receive Date: 20041006
  Receipt Date: 20040924
  Transmission Date: 20050328
  Serious: Yes (Other)
  Sender: FDA-Public Use
  Company Number: PHBS2004JP12858

PATIENT
  Age: 39 Year
  Sex: Female

DRUGS (1)
  1. VOLTAREN [Suspect]
     Indication: TENDON DISORDER
     Dosage: 30 MG/DAY
     Route: 062
     Dates: start: 20040814, end: 20040814

REACTIONS (4)
  - DRUG ERUPTION [None]
  - ECZEMA [None]
  - ERYTHEMA [None]
  - PRURITUS [None]
